FAERS Safety Report 6021485-3 (Version None)
Quarter: 2008Q4

REPORT INFORMATION
  Report Type: 
  Country: None (occurrence: None)
  Receive Date: 20081229
  Receipt Date: 20081217
  Transmission Date: 20090506
  Serious: Yes (Hospitalization)
  Sender: FDA-Public Use
  Company Number: JP-PFIZER INC-2008055896

PATIENT

DRUGS (2)
  1. GENOTROPIN [Suspect]
     Indication: GROWTH HORMONE DEFICIENCY
     Dosage: 3.0MG/WEEK, 6 DAYS A WEEK
     Route: 058
     Dates: start: 20060925
  2. GENOTROPIN [Suspect]
     Dosage: 3.0MG/WEEK, 6 DAYS A WEEK
     Route: 058
     Dates: end: 20080702

REACTIONS (1)
  - NEPHROTIC SYNDROME [None]
